FAERS Safety Report 6132607-8 (Version None)
Quarter: 2009Q1

REPORT INFORMATION
  Report Type: 
  Country: None (occurrence: None)
  Receive Date: 20090324
  Receipt Date: 20090219
  Transmission Date: 20090719
  Serious: Yes (Hospitalization)
  Sender: FDA-Public Use
  Company Number: 219119

PATIENT
  Age: 54 Year
  Sex: Male

DRUGS (19)
  1. LEUCOVORIN CALCIUM [Suspect]
     Indication: GASTRIC CANCER
     Dates: start: 20070320
  2. IRINOTECAN HCL [Suspect]
     Indication: GASTRIC CANCER
     Dosage: INJECTION
     Dates: start: 20070320
  3. FLUOROURACIL [Suspect]
     Indication: GASTRIC CANCER
     Dates: start: 20070320
  4. (BROMAZEPAM) [Concomitant]
  5. (DOLIPRANE) [Concomitant]
  6. OMEPRAZOLE [Concomitant]
  7. PREDNISOLONE [Concomitant]
  8. ARANESP [Concomitant]
  9. ZOLPIDEM [Concomitant]
  10. DURAGESIC-100 [Concomitant]
  11. (ACTISKENAN) [Concomitant]
  12. ONDANSETRON HCL [Concomitant]
  13. METHYLPREDNISOLONE 4MG TAB [Concomitant]
  14. (FORLAX) [Concomitant]
  15. NULYTELY [Concomitant]
  16. (MICROLAX) [Concomitant]
  17. (DOMPERIDONE) [Concomitant]
  18. (LENOGRASTIN) [Concomitant]
  19. POTASSIUM CHLORIDE [Concomitant]

REACTIONS (7)
  - ANAEMIA [None]
  - CONSTIPATION [None]
  - GASTROOESOPHAGEAL REFLUX DISEASE [None]
  - HYPOKALAEMIA [None]
  - NAUSEA [None]
  - NEUTROPENIA [None]
  - PAIN [None]
